FAERS Safety Report 6910320-4 (Version None)
Quarter: 2010Q3

REPORT INFORMATION
  Report Type: 
  Country: None (occurrence: None)
  Receive Date: 20100806
  Receipt Date: 20100727
  Transmission Date: 20110219
  Serious: Yes (Death, Other)
  Sender: FDA-Public Use
  Company Number: US-PFIZER INC-2004058040

PATIENT
  Sex: Male

DRUGS (4)
  1. NEURONTIN [Suspect]
     Indication: BIPOLAR DISORDER
     Dosage: 300 MG, 3X/DAY
     Route: 048
     Dates: start: 20010902
  2. NEURONTIN [Suspect]
     Indication: DEPRESSION
  3. NEURONTIN [Suspect]
     Indication: ANXIETY
  4. REMERON [Concomitant]
     Indication: DEPRESSION
     Route: 065

REACTIONS (5)
  - BRAIN DEATH [None]
  - COMPLETED SUICIDE [None]
  - GUN SHOT WOUND [None]
  - HYPOTENSION [None]
  - INJURY [None]
